FAERS Safety Report 8243785-9 (Version None)
Quarter: 2012Q1

REPORT INFORMATION
  Report Type: 
  Country: None (occurrence: None)
  Receive Date: 20120329
  Receipt Date: 20111102
  Transmission Date: 20120608
  Serious: No
  Sender: FDA-Public Use
  Company Number: US-MYLANLABS-2011S1022638

PATIENT
  Age: 68 Year
  Sex: Male

DRUGS (1)
  1. EMSAM [Suspect]
     Indication: DEPRESSION
     Dosage: CHANGES Q.D.
     Route: 062
     Dates: start: 20111001, end: 20111031

REACTIONS (4)
  - DIZZINESS [None]
  - NAUSEA [None]
  - ABDOMINAL PAIN UPPER [None]
  - HEADACHE [None]
